FAERS Safety Report 6146208-9 (Version None)
Quarter: 2009Q2

REPORT INFORMATION
  Report Type: 
  Country: None (occurrence: None)
  Receive Date: 20090407
  Receipt Date: 20090331
  Transmission Date: 20091009
  Serious: Yes (Other)
  Sender: FDA-Public Use
  Company Number: US-ALLERGAN-0904380US

PATIENT
  Sex: Male

DRUGS (1)
  1. LUMIGAN [Suspect]
     Indication: GLAUCOMA
     Dosage: 1 GTT, QD
     Route: 047
     Dates: start: 20090301, end: 20090326

REACTIONS (3)
  - DRUG INEFFECTIVE [None]
  - VISION BLURRED [None]
  - VISUAL IMPAIRMENT [None]
